FAERS Safety Report 4616908-8 (Version None)
Quarter: 2005Q1

REPORT INFORMATION
  Report Type: 
  Country: None (occurrence: None)
  Receive Date: 20050321
  Receipt Date: 20030109
  Transmission Date: 20050727
  Serious: Yes (Hospitalization)
  Sender: FDA-Public Use
  Company Number: 7235

PATIENT
  Age: 62 Year

DRUGS (2)
  1. PAMIDRONIC ACID [Suspect]
     Indication: MULTIPLE MYELOMA
     Dosage: 90 MG ONCE IV
     Route: 042
     Dates: start: 20021207, end: 20021207
  2. CALCIUM GLUCONATE [Concomitant]

REACTIONS (1)
  - INJECTION SITE PHLEBITIS [None]
